FAERS Safety Report 6856023-6 (Version None)
Quarter: 2010Q3

REPORT INFORMATION
  Report Type: 
  Country: None (occurrence: None)
  Receive Date: 20100719
  Receipt Date: 20100715
  Transmission Date: 20110219
  Serious: Yes (Other)
  Sender: FDA-Public Use
  Company Number: US-BRISTOL-MYERS SQUIBB COMPANY-15193931

PATIENT
  Age: 4 Decade
  Sex: Male

DRUGS (5)
  1. ONGLYZA [Suspect]
     Dosage: 2 DOSES TAKEN ON 13 + 14 JUL10
     Dates: start: 20100713
  2. METFORMIN [Concomitant]
  3. BENICAR [Concomitant]
  4. ASPIRIN [Concomitant]
  5. LIPITOR [Concomitant]

REACTIONS (1)
  - STEVENS-JOHNSON SYNDROME [None]
